FAERS Safety Report 8191782-4 (Version None)
Quarter: 2012Q1

REPORT INFORMATION
  Report Type: 
  Country: None (occurrence: None)
  Receive Date: 20120307
  Receipt Date: 20120221
  Transmission Date: 20120608
  Serious: Yes (Other)
  Sender: FDA-Public Use
  Company Number: CHPA2012US003459

PATIENT
  Age: 69 Year
  Sex: Male

DRUGS (1)
  1. EXCEDRIN EXTRA STRENGTH TABLETS [Suspect]
     Indication: HEADACHE
     Dosage: 2 DF, BID
     Route: 048
     Dates: start: 20111130, end: 20111231

REACTIONS (6)
  - LETHARGY [None]
  - HEADACHE [None]
  - VISION BLURRED [None]
  - MALAISE [None]
  - CONFUSIONAL STATE [None]
  - DRUG INEFFECTIVE [None]
